FAERS Safety Report 23837942 (Version 2)
Quarter: 2024Q3

REPORT INFORMATION
  Report Type: Report from Study
  Country: GB (occurrence: GB)
  Receive Date: 20240509
  Receipt Date: 20240906
  Transmission Date: 20241017
  Serious: Yes (Hospitalization, Other)
  Sender: SANDOZ
  Company Number: GB-SANDOZ-SDZ2024GB001090

PATIENT
  Age: 61 Year
  Sex: Female

DRUGS (1)
  1. ERELZI [Suspect]
     Active Substance: ETANERCEPT-SZZS
     Indication: Ankylosing spondylitis
     Dosage: 50 MG, QW, SOLUTION FOR INJECTION PRE-FILLED PENS (SANDOZ LTD) 4 PRE-FILLED DISPOSABLE  INJECTION
     Route: 058
     Dates: start: 20231130

REACTIONS (5)
  - Hip surgery [Unknown]
  - Limb operation [Unknown]
  - Malaise [Unknown]
  - Influenza like illness [Unknown]
  - Drug ineffective [Unknown]

NARRATIVE: CASE EVENT DATE: 20240501
